FAERS Safety Report 5404246-5 (Version None)
Quarter: 2007Q3

REPORT INFORMATION
  Report Type: 
  Country: None (occurrence: None)
  Receive Date: 20070731
  Receipt Date: 20070716
  Transmission Date: 20080115
  Serious: Yes (Hospitalization)
  Sender: FDA-Public Use
  Company Number: SPV1-2007-02103

PATIENT
  Age: 26 Year
  Sex: Male
  Weight: 72.6 kg

DRUGS (1)
  1. ADDERALL XR(AMPHETAMINE ASPARTATE, AMPHETAMINE SULFATE, DEXTROAMPHETAM [Suspect]
     Indication: ATTENTION DEFICIT/HYPERACTIVITY DISORDER
     Dosage: 25 MG, 1X/DAY:QD,
     Dates: start: 20050201, end: 20070301

REACTIONS (3)
  - INSOMNIA [None]
  - INTERVERTEBRAL DISC DEGENERATION [None]
  - SOMNOLENCE [None]
